FAERS Safety Report 8126527-7 (Version None)
Quarter: 2012Q1

REPORT INFORMATION
  Report Type: 
  Country: None (occurrence: None)
  Receive Date: 20120210
  Receipt Date: 20120131
  Transmission Date: 20120608
  Serious: Yes (Other)
  Sender: FDA-Public Use
  Company Number: BR-AMGEN-BRASP2012007995

PATIENT
  Age: 65 Year
  Sex: Male
  Weight: 85 kg

DRUGS (9)
  1. DOXAZOSIN MESYLATE [Concomitant]
     Indication: PROSTATIC DISORDER
     Dosage: 2 MG, 1X/DAY
  2. BROMAZEPAM [Concomitant]
     Indication: DEPRESSION
     Dosage: 6 MG, 1X/DAY
     Dates: start: 20020101
  3. FLUTICASONE PROPIONATE/SALMETEROL [Concomitant]
     Indication: CHRONIC OBSTRUCTIVE PULMONARY DISEASE
     Dosage: 50/250 INHALED IN CASE OF SHORTHNESS OF BREATH
  4. ENBREL [Suspect]
     Indication: RHEUMATOID ARTHRITIS
     Dosage: UNK
     Route: 058
  5. ENALAPRIL MALEATE [Concomitant]
     Indication: HYPERTENSION
     Dosage: UNK
  6. METHOTREXATE [Concomitant]
     Indication: RHEUMATOID ARTHRITIS
     Dosage: THREE TABLETS OF 2.5MG (7.5 MG), WEEKLY
  7. ENBREL [Suspect]
     Dosage: 50 MG, ONE APPLICATION PER WEEK (ON MONDAY)
     Dates: start: 20111101
  8. SIMVASTATIN [Concomitant]
     Indication: BLOOD CHOLESTEROL
     Dosage: 40 MG, 1X/DAY
  9. PREDNISONE [Concomitant]
     Indication: RHEUMATOID ARTHRITIS
     Dosage: 5 MG, 1X/DAY

REACTIONS (5)
  - CHOLELITHIASIS [None]
  - OSTEOPOROSIS [None]
  - CORONARY ARTERY DISEASE [None]
  - INJECTION SITE PAIN [None]
  - INGUINAL HERNIA [None]
